FAERS Safety Report 4324490-8 (Version None)
Quarter: 2004Q1

REPORT INFORMATION
  Report Type: 
  Country: None (occurrence: None)
  Receive Date: 20040326
  Receipt Date: 20040220
  Transmission Date: 20041129
  Serious: No
  Sender: FDA-Public Use
  Company Number: US-GLAXOSMITHKLINE-A0499198A

PATIENT
  Age: 8 Year
  Sex: Male

DRUGS (3)
  1. ADVAIR DISKUS 100/50 [Suspect]
     Indication: ASTHMA
     Dosage: 1PUFF TWICE PER DAY
     Route: 055
  2. ANTIBIOTIC [Concomitant]
  3. SINGULAIR [Concomitant]

REACTIONS (2)
  - PHARYNGITIS STREPTOCOCCAL [None]
  - UPPER RESPIRATORY TRACT INFECTION [None]
